FAERS Safety Report 15127059 (Version 1)
Quarter: 2018Q3

REPORT INFORMATION
  Report Type: Spontaneous
  Country: CN (occurrence: CN)
  Receive Date: 20180710
  Receipt Date: 20180710
  Transmission Date: 20181010
  Serious: Yes (Other)
  Sender: FDA-Public Use
  Company Number: CN-JNJFOC-20180705098

PATIENT

DRUGS (2)
  1. SPORANOX [Suspect]
     Active Substance: ITRACONAZOLE
     Indication: PULMONARY MYCOSIS
     Dosage: 250MG IVGTT, Q12H ON DAY 1 AND 2, Q24H ON DAY 3 AND LATER
     Route: 042
  2. SPORANOX [Suspect]
     Active Substance: ITRACONAZOLE
     Indication: PULMONARY MYCOSIS
     Route: 048

REACTIONS (4)
  - Gastrointestinal disorder [Unknown]
  - Hyperpyrexia [Unknown]
  - Chills [Unknown]
  - Hepatic enzyme increased [Unknown]
